FAERS Safety Report 24314868 (Version 1)
Quarter: 2024Q3

REPORT INFORMATION
  Report Type: Spontaneous
  Country: FR (occurrence: FR)
  Receive Date: 20240913
  Receipt Date: 20240913
  Transmission Date: 20241017
  Serious: Yes (Hospitalization, Other)
  Sender: AUROBINDO
  Company Number: FR-AFSSAPS-PA2024001508

PATIENT
  Age: 48 Year
  Sex: Male

DRUGS (3)
  1. LINEZOLID [Suspect]
     Active Substance: LINEZOLID
     Indication: Pyelonephritis
     Dosage: 600 MILLIGRAM, TWO TIMES A DAY
     Route: 042
     Dates: start: 20240808, end: 20240816
  2. IOMERON [Suspect]
     Active Substance: IOMEPROL
     Indication: Product used for unknown indication
     Dosage: 1 TOTAL
     Route: 042
     Dates: start: 20240704, end: 20240704
  3. TEICOPLANIN [Suspect]
     Active Substance: TEICOPLANIN
     Indication: Pyelonephritis
     Dosage: 6 MILLIGRAM/KILOGRAM, TWO TIMES A DAY
     Route: 042
     Dates: start: 20240716, end: 20240808

REACTIONS (4)
  - Thrombocytopenia [Recovering/Resolving]
  - Condition aggravated [Recovering/Resolving]
  - Eosinophilia [Recovering/Resolving]
  - Pruritus [Recovering/Resolving]

NARRATIVE: CASE EVENT DATE: 20240802
